FAERS Safety Report 9956790 (Version 1)
Quarter: 2014Q1

REPORT INFORMATION
  Report Type: Report from Study
  Country: US (occurrence: US)
  Receive Date: 20140304
  Receipt Date: 20140304
  Transmission Date: 20141002
  Serious: No
  Sender: FDA-Public Use
  Company Number: US-ABBVIE-13P-163-1098649-00

PATIENT
  Age: 76 Year
  Sex: Female

DRUGS (3)
  1. HUMIRA [Suspect]
     Indication: PSORIASIS
     Dates: start: 20130222
  2. BENICAR [Concomitant]
     Indication: HYPERTENSION
     Dosage: A VERY, VERY LIGHT DOSE DAILY
  3. MULTI VIT [Concomitant]
     Indication: PRODUCT USED FOR UNKNOWN INDICATION
     Dosage: ON 13 DIFFERENT KINDS OF VITAMINS

REACTIONS (1)
  - Fatigue [Recovering/Resolving]
